FAERS Safety Report 15097414 (Version 1)
Quarter: 2018Q2

REPORT INFORMATION
  Report Type: Spontaneous
  Country: US (occurrence: US)
  Receive Date: 20180609
  Receipt Date: 20180609
  Transmission Date: 20180711
  Serious: Yes (Hospitalization)
  Sender: FDA-Public Use
  Company Number: None

PATIENT
  Age: 69 Year
  Sex: Female
  Weight: 94.3 kg

DRUGS (2)
  1. GEMCITABINE HYDROCHLORIDE. [Suspect]
     Active Substance: GEMCITABINE HYDROCHLORIDE
     Dates: end: 20180522
  2. CISPLATIN. [Suspect]
     Active Substance: CISPLATIN
     Dates: end: 20180522

REACTIONS (6)
  - Constipation [None]
  - Diarrhoea [None]
  - Tremor [None]
  - Nausea [None]
  - Chills [None]
  - Abdominal pain [None]

NARRATIVE: CASE EVENT DATE: 20180529
